FAERS Safety Report 10647267 (Version 1)
Quarter: 2014Q4

REPORT INFORMATION
  Report Type: Spontaneous
  Country: US (occurrence: US)
  Receive Date: 20141211
  Receipt Date: 20141211
  Transmission Date: 20150529
  Serious: Yes (Other)
  Sender: FDA-Public Use
  Company Number: US-SUCAMPO AG-SPI201400897

PATIENT
  Age: 84 Year
  Sex: Female
  Weight: 83 kg

DRUGS (3)
  1. COSOPT PF [Suspect]
     Active Substance: DORZOLAMIDE HYDROCHLORIDE\TIMOLOL MALEATE
     Indication: GLAUCOMA
     Dosage: UNK
     Dates: start: 201312
  2. UNKNOWN [Concomitant]
     Active Substance: UNSPECIFIED INGREDIENT
     Indication: BLOOD CHOLESTEROL INCREASED
     Dosage: 10 MG, TWICE A WEEK
     Route: 048
  3. RESCULA [Suspect]
     Active Substance: UNOPROSTONE ISOPROPYL
     Indication: GLAUCOMA
     Dosage: 1 GTT, QAM AND QPM BOTH EYES
     Route: 047
     Dates: start: 2014, end: 201411

REACTIONS (3)
  - Atrial fibrillation [Recovered/Resolved]
  - Balance disorder [Recovering/Resolving]
  - Drug interaction [Unknown]

NARRATIVE: CASE EVENT DATE: 201410
